FAERS Safety Report 8492826-2 (Version None)
Quarter: 2012Q3

REPORT INFORMATION
  Report Type: 
  Country: None (occurrence: None)
  Receive Date: 20120706
  Receipt Date: 20120627
  Transmission Date: 20120928
  Serious: Yes (Hospitalization)
  Sender: FDA-Public Use
  Company Number: CA-JNJFOC-20120614186

PATIENT
  Sex: Female
  Weight: 93.2 kg

DRUGS (2)
  1. REMICADE [Suspect]
     Indication: CROHN'S DISEASE
     Route: 042
     Dates: start: 20051206
  2. IMURAN [Concomitant]
     Route: 065

REACTIONS (1)
  - SHOULDER OPERATION [None]
